FAERS Safety Report 7980047-9 (Version None)
Quarter: 2011Q4

REPORT INFORMATION
  Report Type: 
  Country: None (occurrence: None)
  Receive Date: 20111208
  Receipt Date: 20111129
  Transmission Date: 20120403
  Serious: Yes (Hospitalization, Disabling, Other)
  Sender: FDA-Public Use
  Company Number: 2011SP055854

PATIENT
  Age: 37 Year
  Sex: Male

DRUGS (2)
  1. METOCLOPRAMIDE [Concomitant]
  2. SAPHRIS [Suspect]
     Indication: SCHIZOPHRENIA

REACTIONS (1)
  - NEUTROPHIL COUNT DECREASED [None]
